FAERS Safety Report 18098962 (Version 2)
Quarter: 2020Q4

REPORT INFORMATION
  Report Type: Spontaneous
  Country: FR (occurrence: FR)
  Receive Date: 20200731
  Receipt Date: 20201006
  Transmission Date: 20210113
  Serious: Yes (Other)
  Sender: FDA-Public Use
  Company Number: FR-SA-2020SA195222

PATIENT

DRUGS (14)
  1. VENTOLINE [SALBUTAMOL] [Concomitant]
     Active Substance: ALBUTEROL SULFATE
     Indication: ASTHMA
     Dosage: 100 UG, PRN
     Route: 055
     Dates: start: 2009
  2. LOCAPRED [Concomitant]
     Active Substance: DESONIDE
     Indication: DERMATITIS ATOPIC
     Dosage: UNK
     Dates: start: 20190503, end: 20191226
  3. FUCIDINE [FUSIDIC ACID] [Concomitant]
     Active Substance: FUSIDIC ACID
     Indication: DERMATITIS ATOPIC
     Dosage: UNK
     Dates: start: 20191216, end: 20191220
  4. NERISONE [Concomitant]
     Active Substance: DIFLUCORTOLONE VALERATE
     Indication: DERMATITIS ATOPIC
     Dosage: UNK
     Dates: start: 20191216, end: 20191226
  5. NERISONE [Concomitant]
     Active Substance: DIFLUCORTOLONE VALERATE
     Dosage: UNK, QD
     Route: 058
     Dates: start: 20200306
  6. DUPILUMAB [Suspect]
     Active Substance: DUPILUMAB
     Indication: DERMATITIS ATOPIC
     Dosage: 600 MG, 1X
     Route: 058
     Dates: start: 20200110, end: 20200110
  7. FLIXOVATE [Concomitant]
     Active Substance: FLUTICASONE PROPIONATE
     Indication: DERMATITIS ATOPIC
     Dosage: UNK
     Dates: start: 2013, end: 20191220
  8. TOPIALYSE [Concomitant]
     Dosage: 1 DF, QD
     Route: 061
     Dates: start: 20190503
  9. GLYCEROL [Concomitant]
     Active Substance: GLYCERIN
     Dosage: UNK UNK, QD
     Route: 061
     Dates: start: 20190503, end: 20191225
  10. BREO ELLIPTA [Concomitant]
     Active Substance: FLUTICASONE FUROATE\VILANTEROL TRIFENATATE
     Indication: ASTHMA
     Dosage: 1 DF, QD
     Route: 055
     Dates: start: 20200129
  11. GLYCEROL [Concomitant]
     Active Substance: GLYCERIN
     Dosage: UNK UNK, BID
     Route: 061
     Dates: start: 20191226
  12. DUPILUMAB [Suspect]
     Active Substance: DUPILUMAB
     Dosage: 300 MG, QOW
     Route: 058
     Dates: start: 20200124
  13. RELVAR [Concomitant]
     Active Substance: FLUTICASONE FUROATE\VILANTEROL TRIFENATATE
     Indication: ASTHMA
     Dosage: 92 UG, QD
     Dates: start: 20200129
  14. UPADACITINIB [Suspect]
     Active Substance: UPADACITINIB

REACTIONS (3)
  - Blood creatine phosphokinase increased [Recovered/Resolved]
  - Aspartate aminotransferase increased [Recovered/Resolved]
  - Alanine aminotransferase increased [Recovered/Resolved]

NARRATIVE: CASE EVENT DATE: 20200629
